FAERS Safety Report 22399879 (Version 1)
Quarter: 2023Q2

REPORT INFORMATION
  Report Type: Spontaneous
  Country: US (occurrence: US)
  Receive Date: 20230602
  Receipt Date: 20230602
  Transmission Date: 20230721
  Serious: No
  Sender: FDA-Public Use
  Company Number: US-INSUD PHARMA-2305US03436

PATIENT

DRUGS (1)
  1. SLYND [Suspect]
     Active Substance: DROSPIRENONE
     Indication: Product used for unknown indication
     Dosage: UNKNOWN, IN THE EVENING AROUND 6 PM
     Route: 048

REACTIONS (2)
  - Palpitations [Recovering/Resolving]
  - Temperature regulation disorder [Unknown]
